FAERS Safety Report 26069274 (Version 1)
Quarter: 2025Q4

REPORT INFORMATION
  Report Type: Spontaneous
  Country: CN (occurrence: CN)
  Receive Date: 20251120
  Receipt Date: 20251120
  Transmission Date: 20260118
  Serious: Yes (Other)
  Sender: JOHNSON AND JOHNSON
  Company Number: CN-JNJFOC-20251153027

PATIENT

DRUGS (1)
  1. RYBREVANT [Suspect]
     Active Substance: AMIVANTAMAB-VMJW
     Indication: Non-small cell lung cancer
     Route: 065

REACTIONS (5)
  - Metastases to central nervous system [Unknown]
  - Altered state of consciousness [Unknown]
  - Drug intolerance [Unknown]
  - Underweight [Unknown]
  - Confusional state [Unknown]
